FAERS Safety Report 25222950 (Version 1)
Quarter: 2025Q2

REPORT INFORMATION
  Report Type: Other
  Country: ES (occurrence: ES)
  Receive Date: 20250422
  Receipt Date: 20250422
  Transmission Date: 20250717
  Serious: Yes (Hospitalization, Other)
  Sender: GLENMARK
  Company Number: None

PATIENT
  Age: 82 Year
  Sex: Male

DRUGS (4)
  1. GABAPENTIN [Interacting]
     Active Substance: GABAPENTIN
     Indication: Intervertebral disc protrusion
     Dosage: 600 MILLIGRAM, QD (GABAPENTINA 300 MG 90 CAPSULAS  CRONICA 1 COMIDA,1 ACOSTARSE)
     Route: 048
     Dates: start: 20240624, end: 20241218
  2. ENALAPRIL\HYDROCHLOROTHIAZIDE [Interacting]
     Active Substance: ENALAPRIL\HYDROCHLOROTHIAZIDE
     Indication: Hypertension
     Dosage: 1 DOSAGE FORM, QD (1 COMPRIMIDO CADA 24 HORAS)
     Route: 048
     Dates: start: 20241212, end: 20241218
  3. ENALAPRIL [Concomitant]
     Active Substance: ENALAPRIL
     Indication: Hypertension
     Dosage: 10 MILLIGRAM, BID, (5 MG/12 H 22/11/2024 AL 27/11/2024, 10 MG /12 H 27/11/2024 AL 12/12/2024, 10 MG
     Route: 048
     Dates: start: 20241122
  4. METAMIZOL [Concomitant]
     Active Substance: METAMIZOLE SODIUM
     Indication: Back pain
     Route: 048
     Dates: start: 20241204, end: 20241218

REACTIONS (3)
  - Syncope [Recovered/Resolved]
  - Hyponatraemia [Recovered/Resolved]
  - Drug interaction [Unknown]

NARRATIVE: CASE EVENT DATE: 20241218
